FAERS Safety Report 9695444 (Version 47)
Quarter: 2024Q1

REPORT INFORMATION
  Report Type: Report from Study
  Country: CA (occurrence: CA)
  Receive Date: 20131119
  Receipt Date: 20240207
  Transmission Date: 20240410
  Serious: Yes (Hospitalization, Other)
  Sender: FDA-Public Use
  Company Number: PHHY2013CA106840

PATIENT
  Age: 55 Year
  Sex: Female

DRUGS (14)
  1. SANDOSTATIN [Suspect]
     Active Substance: OCTREOTIDE ACETATE
     Indication: Neuroendocrine tumour
     Dosage: UNK UG, TID (FOR 7 DAYS)
     Route: 058
     Dates: start: 20130813, end: 201308
  2. SANDOSTATIN [Suspect]
     Active Substance: OCTREOTIDE ACETATE
     Indication: Carcinoid tumour
     Dosage: 200 UG, TID
     Route: 058
     Dates: start: 20160301
  3. SANDOSTATIN [Suspect]
     Active Substance: OCTREOTIDE ACETATE
  4. SANDOSTATIN LAR DEPOT [Suspect]
     Active Substance: OCTREOTIDE ACETATE
     Indication: Neuroendocrine tumour
     Dosage: 30 MG, QMO
     Route: 030
     Dates: start: 20130822
  5. SANDOSTATIN LAR DEPOT [Suspect]
     Active Substance: OCTREOTIDE ACETATE
     Indication: Carcinoid tumour
     Dosage: 30 MG, EVERY 21 DAYS (3 WEEKS)
     Route: 030
     Dates: start: 20131112
  6. SANDOSTATIN LAR DEPOT [Suspect]
     Active Substance: OCTREOTIDE ACETATE
     Dosage: 50 MG, QMO (ONCE A MONTH)
     Route: 030
     Dates: start: 20140227
  7. SANDOSTATIN LAR DEPOT [Suspect]
     Active Substance: OCTREOTIDE ACETATE
     Dosage: 50 MG, (EVERY 3 WEEKS)
     Route: 030
     Dates: start: 20140918
  8. SANDOSTATIN LAR DEPOT [Suspect]
     Active Substance: OCTREOTIDE ACETATE
     Dosage: 60 MG, Q3W
     Route: 048
     Dates: start: 20151112
  9. SANDOSTATIN LAR DEPOT [Suspect]
     Active Substance: OCTREOTIDE ACETATE
     Dosage: 60 MG, QMO (ONCE A MONTH)
     Route: 030
     Dates: start: 20160315
  10. SANDOSTATIN LAR DEPOT [Suspect]
     Active Substance: OCTREOTIDE ACETATE
     Dosage: 60 MG, (EVERY 3 WEEKS)
     Route: 030
  11. SANDOSTATIN LAR DEPOT [Suspect]
     Active Substance: OCTREOTIDE ACETATE
     Dosage: 60 MG, Q3W
     Route: 030
  12. SANDOSTATIN LAR DEPOT [Suspect]
     Active Substance: OCTREOTIDE ACETATE
     Dosage: UNK
     Route: 065
     Dates: start: 20210805
  13. DILAUDID [Concomitant]
     Active Substance: HYDROMORPHONE HYDROCHLORIDE
     Indication: Product used for unknown indication
     Dosage: UNK, 1-2 CO Q 4 HOURS
     Route: 048
  14. MORPHINE [Concomitant]
     Active Substance: MORPHINE
     Indication: Product used for unknown indication
     Dosage: 5 MG, Q6H
     Route: 065

REACTIONS (42)
  - Diabetes mellitus [Unknown]
  - Fatigue [Unknown]
  - Injection site infection [Unknown]
  - Malaise [Unknown]
  - Cardiac arrest [Unknown]
  - Vomiting [Unknown]
  - Nausea [Recovered/Resolved]
  - Anaemia [Unknown]
  - Blood pressure increased [Unknown]
  - Renal cancer [Unknown]
  - Second primary malignancy [Unknown]
  - Metastases to gastrointestinal tract [Recovering/Resolving]
  - Metastases to breast [Unknown]
  - Breast mass [Unknown]
  - Malignant neoplasm progression [Unknown]
  - Neoplasm progression [Unknown]
  - Breast pain [Unknown]
  - Tumour compression [Unknown]
  - Erythema [Unknown]
  - Gait disturbance [Unknown]
  - Contusion [Unknown]
  - Scar [Unknown]
  - Blood pressure systolic increased [Unknown]
  - Hypertension [Unknown]
  - Nasopharyngitis [Unknown]
  - Influenza [Recovering/Resolving]
  - Discomfort [Recovered/Resolved]
  - Sleep apnoea syndrome [Unknown]
  - Cough [Recovering/Resolving]
  - Dyspnoea [Unknown]
  - Tachycardia [Recovered/Resolved]
  - Needle issue [Unknown]
  - Inappropriate schedule of product administration [Unknown]
  - Injection site erythema [Unknown]
  - Injection site pain [Unknown]
  - Injection site swelling [Unknown]
  - Injection site haemorrhage [Recovered/Resolved]
  - Injection site haemorrhage [Recovered/Resolved]
  - Injection site haemorrhage [Recovered/Resolved]
  - Underdose [Unknown]
  - Product deposit [Unknown]
  - Diarrhoea [Unknown]

NARRATIVE: CASE EVENT DATE: 20131106
